FAERS Safety Report 22190176 (Version 1)
Quarter: 2023Q2

REPORT INFORMATION
  Report Type: Spontaneous
  Country: US (occurrence: US)
  Receive Date: 20230410
  Receipt Date: 20230410
  Transmission Date: 20230722
  Serious: No
  Sender: FDA-Public Use
  Company Number: US-AVEO ONCOLOGY-2023-AVEO-US000006

PATIENT

DRUGS (19)
  1. FOTIVDA [Suspect]
     Active Substance: TIVOZANIB HYDROCHLORIDE
     Indication: Renal cell carcinoma
     Dosage: 0.89 MG, DAILY FOR 21 DAYS WITH 7 DAYS OFF (28-DAY CYCLE)
     Route: 048
     Dates: start: 20230101
  2. ACETAMINOPHEN [Concomitant]
     Active Substance: ACETAMINOPHEN
     Dosage: 325 MG
  3. DILTIAZEM [Concomitant]
     Active Substance: DILTIAZEM
     Dosage: 240 MG
  4. ELIQUIS [Concomitant]
     Active Substance: APIXABAN
     Dosage: 5 MG
  5. FLECAINIDE ACETATE [Concomitant]
     Active Substance: FLECAINIDE ACETATE
     Dosage: 100 MG
  6. GARLIC [Concomitant]
     Active Substance: GARLIC
     Dosage: 350 MG
  7. HEPARIN [Concomitant]
     Active Substance: HEPARIN SODIUM
  8. NORCO [Concomitant]
     Active Substance: ACETAMINOPHEN\HYDROCODONE BITARTRATE
  9. LEVOTHYROXINE [Concomitant]
     Active Substance: LEVOTHYROXINE
     Dosage: 75 UG
  10. MAGOX [Concomitant]
  11. NEBIVOLOL [Concomitant]
     Active Substance: NEBIVOLOL
     Dosage: 10 MG
  12. POLYETHYLENE GLYCOL 3350 [Concomitant]
     Active Substance: POLYETHYLENE GLYCOL 3350
  13. POTASSIUM CHLORIDE [Concomitant]
     Active Substance: POTASSIUM CHLORIDE
     Dosage: 20 MEQ
  14. PROCHLORPERAZINE [Concomitant]
     Active Substance: PROCHLORPERAZINE
  15. MAGNESIUM CHLORIDE [Concomitant]
     Active Substance: MAGNESIUM CHLORIDE
  16. UREA [Concomitant]
     Active Substance: UREA
  17. VITAMIN D3 [Concomitant]
     Active Substance: CHOLECALCIFEROL
  18. ACETAMINOPHEN\HYDROCODONE [Concomitant]
     Active Substance: ACETAMINOPHEN\HYDROCODONE
     Dosage: 10-325 MG
  19. MAGNESIUM OXIDE [Concomitant]
     Active Substance: MAGNESIUM OXIDE
     Dosage: 400 MG

REACTIONS (2)
  - Nausea [Recovering/Resolving]
  - Abdominal discomfort [Not Recovered/Not Resolved]

NARRATIVE: CASE EVENT DATE: 20230101
